FAERS Safety Report 9402515 (Version 2)
Quarter: 2013Q3

REPORT INFORMATION
  Report Type: Spontaneous
  Country: AU (occurrence: AU)
  Receive Date: 20130716
  Receipt Date: 20130717
  Transmission Date: 20140515
  Serious: Yes (Hospitalization, Other)
  Sender: FDA-Public Use
  Company Number: AU-PFIZER INC-2013204145

PATIENT
  Sex: Male

DRUGS (1)
  1. SUTENT [Suspect]
     Indication: METASTATIC RENAL CELL CARCINOMA

REACTIONS (7)
  - Gastric ulcer [Unknown]
  - Wound dehiscence [Unknown]
  - Staphylococcal infection [Unknown]
  - Pleural effusion [Unknown]
  - Venous thrombosis limb [Unknown]
  - Disease progression [Unknown]
  - Metastatic renal cell carcinoma [Unknown]
